FAERS Safety Report 13784446 (Version 1)
Quarter: 2017Q3

REPORT INFORMATION
  Report Type: Spontaneous
  Country: US (occurrence: US)
  Receive Date: 20170724
  Receipt Date: 20170724
  Transmission Date: 20171127
  Serious: No
  Sender: FDA-Public Use
  Company Number: US-IMPAX LABORATORIES, INC-2017-IPXL-01072

PATIENT
  Age: 71 Year
  Sex: Female
  Weight: 81 kg

DRUGS (1)
  1. RYTARY [Suspect]
     Active Substance: CARBIDOPA\LEVODOPA
     Indication: PARKINSON^S DISEASE
     Dosage: 48.75/195MG, THREE CAPSULES, TID
     Route: 048

REACTIONS (4)
  - Speech disorder [Unknown]
  - Dysgraphia [Not Recovered/Not Resolved]
  - Therapy cessation [Unknown]
  - Fall [Unknown]

NARRATIVE: CASE EVENT DATE: 201705
